FAERS Safety Report 22103474 (Version 1)
Quarter: 2023Q1

REPORT INFORMATION
  Report Type: Spontaneous
  Country: DE (occurrence: DE)
  Receive Date: 20230316
  Receipt Date: 20230316
  Transmission Date: 20230418
  Serious: Yes (Hospitalization)
  Sender: FDA-Public Use
  Company Number: DE-BAYER-2023A011769

PATIENT
  Age: 61 Year
  Sex: Male
  Weight: 139 kg

DRUGS (2)
  1. GADOBUTROL [Suspect]
     Active Substance: GADOBUTROL
     Indication: Magnetic resonance imaging head
     Dosage: 8 ML, ONCE
     Route: 042
     Dates: start: 20230117, end: 20230117
  2. GADOBUTROL [Suspect]
     Active Substance: GADOBUTROL
     Indication: Deafness

REACTIONS (5)
  - Cardiovascular disorder [Not Recovered/Not Resolved]
  - Nausea [Not Recovered/Not Resolved]
  - Vomiting [Not Recovered/Not Resolved]
  - Cold sweat [Not Recovered/Not Resolved]
  - Dizziness [Unknown]

NARRATIVE: CASE EVENT DATE: 20230117
